FAERS Safety Report 25021243 (Version 1)
Quarter: 2025Q1

REPORT INFORMATION
  Report Type: Spontaneous
  Country: US (occurrence: US)
  Receive Date: 20250228
  Receipt Date: 20250228
  Transmission Date: 20250408
  Serious: Yes (Hospitalization)
  Sender: ROCHE
  Company Number: US-ROCHE-10000219806

PATIENT
  Age: 86 Year
  Sex: Female

DRUGS (1)
  1. ERIVEDGE [Suspect]
     Active Substance: VISMODEGIB
     Indication: Malignant nipple neoplasm female
     Route: 048

REACTIONS (2)
  - Urinary tract infection [Unknown]
  - Off label use [Unknown]

NARRATIVE: CASE EVENT DATE: 20250226
